FAERS Safety Report 8513366-8 (Version None)
Quarter: 2012Q3

REPORT INFORMATION
  Report Type: 
  Country: None (occurrence: None)
  Receive Date: 20120716
  Receipt Date: 20120709
  Transmission Date: 20120928
  Serious: Yes (Other)
  Sender: FDA-Public Use
  Company Number: FR-BRISTOL-MYERS SQUIBB COMPANY-16725921

PATIENT
  Sex: Male

DRUGS (1)
  1. NULOJIX [Suspect]

REACTIONS (1)
  - PANCYTOPENIA [None]
